FAERS Safety Report 5621913-9 (Version None)
Quarter: 2008Q1

REPORT INFORMATION
  Report Type: 
  Country: None (occurrence: None)
  Receive Date: 20080206
  Receipt Date: 20080125
  Transmission Date: 20080703
  Serious: Yes (Other)
  Sender: FDA-Public Use
  Company Number: 2008AP000289

PATIENT
  Age: 33 Year
  Sex: Male

DRUGS (3)
  1. PAROXETINE HCL [Suspect]
     Dosage: 10 MG; QD PO, 10 MG; PO; QD, 20 MG; PO; QD, 30 MG; PO; QD, 40 MG; PO; QD, 20 MG; PO; QD
     Route: 048
     Dates: start: 19961107
  2. PAROXETINE HCL [Suspect]
     Dosage: 10 MG; QD PO, 10 MG; PO; QD, 20 MG; PO; QD, 30 MG; PO; QD, 40 MG; PO; QD, 20 MG; PO; QD
     Route: 048
     Dates: start: 20050510
  3. PAROXETINE HCL [Suspect]
     Dosage: 10 MG; QD PO, 10 MG; PO; QD, 20 MG; PO; QD, 30 MG; PO; QD, 40 MG; PO; QD, 20 MG; PO; QD
     Route: 048
     Dates: start: 20050510

REACTIONS (7)
  - AGGRESSION [None]
  - DRUG WITHDRAWAL SYNDROME [None]
  - IRRITABILITY [None]
  - MUSCLE TWITCHING [None]
  - PARANOIA [None]
  - PRURITUS [None]
  - SUICIDAL IDEATION [None]
